FAERS Safety Report 8062832-0 (Version None)
Quarter: 2012Q1

REPORT INFORMATION
  Report Type: 
  Country: None (occurrence: None)
  Receive Date: 20120123
  Receipt Date: 20120116
  Transmission Date: 20120608
  Serious: Yes (Death, Other)
  Sender: FDA-Public Use
  Company Number: GB-ROCHE-1014754

PATIENT
  Sex: Female

DRUGS (13)
  1. SENNA [Concomitant]
  2. SIMVASTATIN [Concomitant]
  3. CO-DYDRAMOL [Concomitant]
  4. CHLORAMPHENICOL [Concomitant]
  5. LUCENTIS [Suspect]
     Indication: MACULAR DEGENERATION
     Route: 050
     Dates: start: 20100519
  6. MOVIPREP [Concomitant]
  7. LACTULOSE [Concomitant]
  8. OMEPRAZOLE [Concomitant]
  9. IBUPROFEN [Concomitant]
  10. GLICLAZIDE [Concomitant]
  11. FLUCLOXACILLIN [Concomitant]
  12. PENICILLIN [Concomitant]
  13. ALLOPURINOL [Concomitant]

REACTIONS (6)
  - TYPE 2 DIABETES MELLITUS [None]
  - CELLULITIS [None]
  - CONSTIPATION [None]
  - SPLENOMEGALY [None]
  - DEATH [None]
  - CHRONIC LYMPHOCYTIC LEUKAEMIA [None]
